FAERS Safety Report 23836085 (Version 1)
Quarter: 2024Q2

REPORT INFORMATION
  Report Type: Spontaneous
  Country: FR (occurrence: FR)
  Receive Date: 20240509
  Receipt Date: 20240509
  Transmission Date: 20240716
  Serious: Yes (Hospitalization, Other)
  Sender: FDA-Public Use
  Company Number: None

PATIENT
  Age: 87 Year
  Sex: Male
  Weight: 68 kg

DRUGS (6)
  1. CLOPIDOGREL BISULFATE [Interacting]
     Active Substance: CLOPIDOGREL BISULFATE
     Indication: Thromboangiitis obliterans
     Dosage: 1 DF, QD
     Route: 048
     Dates: end: 20240417
  2. OMEPRAZOLE [Interacting]
     Active Substance: DONEPEZIL HYDROCHLORIDE\OMEPRAZOLE\OMEPRAZOLE MAGNESIUM
     Indication: Product used for unknown indication
     Dosage: UNK
     Route: 048
     Dates: end: 202404
  3. ATORVASTATIN [Concomitant]
     Active Substance: ATORVASTATIN
     Dosage: 20 MG, QD
     Route: 048
  4. FUROSEMIDE [Concomitant]
     Active Substance: FUROSEMIDE
     Dosage: 125 MG, QD
     Route: 048
  5. TAMSULOSIN [Concomitant]
     Active Substance: TAMSULOSIN
     Dosage: 0.4 MG, QD
     Route: 048
  6. PENTASA [Concomitant]
     Active Substance: MESALAMINE
     Dosage: 1 DF
     Route: 054

REACTIONS (2)
  - Cerebrovascular accident [Recovered/Resolved]
  - Drug interaction [Recovered/Resolved]

NARRATIVE: CASE EVENT DATE: 20211107
